FAERS Safety Report 8187367 (Version 3)
Quarter: 2013Q3

REPORT INFORMATION
  Report Type: Spontaneous
  Country: US (occurrence: US)
  Receive Date: 20111018
  Receipt Date: 20130910
  Transmission Date: 20140515
  Serious: No
  Sender: FDA-Public Use
  Company Number: US-ASTRAZENECA-2010SE47891

PATIENT
  Age: 77 Year
  Sex: Female
  Weight: 74.8 kg

DRUGS (9)
  1. ATACAND [Suspect]
     Route: 048
  2. ATACAND HCT [Suspect]
     Route: 048
  3. NEXIUM [Suspect]
     Indication: GASTROOESOPHAGEAL REFLUX DISEASE
     Route: 048
  4. SYMBICORT [Suspect]
     Indication: CHRONIC OBSTRUCTIVE PULMONARY DISEASE
     Dosage: 160/4.5 MG 2 PUFFS TWO TIMES A DAY
     Route: 055
     Dates: start: 2009
  5. SYMBICORT [Suspect]
     Indication: CHRONIC OBSTRUCTIVE PULMONARY DISEASE
     Dosage: 160/4.5 MG 2 PUFFS TWO TIMES A DAY
     Route: 055
     Dates: start: 201009
  6. TOPROL XL [Suspect]
     Indication: BLOOD PRESSURE
     Route: 048
  7. TOPROL XL [Suspect]
     Indication: BLOOD PRESSURE
     Route: 048
  8. HYDROCODONE/ACETAMINOPHEN [Concomitant]
     Indication: PAIN
     Dosage: 5/500 PRN
     Route: 048
  9. METOPROLOL ER [Concomitant]
     Indication: BLOOD PRESSURE
     Dosage: HALF A 25 MG TWO TIMES A DAY
     Route: 048

REACTIONS (6)
  - Lacrimation increased [Recovered/Resolved]
  - Hypotension [Unknown]
  - Muscle spasms [Recovered/Resolved]
  - Dysphonia [Unknown]
  - Thyroid neoplasm [Unknown]
  - Intentional drug misuse [Unknown]
